FAERS Safety Report 12565207 (Version 1)
Quarter: 2016Q3

REPORT INFORMATION
  Report Type: Spontaneous
  Country: US (occurrence: US)
  Receive Date: 20160718
  Receipt Date: 20160718
  Transmission Date: 20161109
  Serious: No
  Sender: FDA-Public Use
  Company Number: US-PFIZER INC-2015248348

PATIENT
  Age: 51 Year
  Sex: Female
  Weight: 69 kg

DRUGS (6)
  1. GENOTROPIN [Suspect]
     Active Substance: SOMATROPIN
     Dosage: 0.3 MG, 1X/DAY
     Dates: start: 2000
  2. GENOTROPIN [Suspect]
     Active Substance: SOMATROPIN
     Indication: GROWTH HORMONE DEFICIENCY
     Dosage: 3 MG
  3. GENOTROPIN [Suspect]
     Active Substance: SOMATROPIN
     Dosage: 0.3 MG, 1X/DAY (AT NIGHT, INJECTION)
     Dates: start: 2006, end: 201602
  4. GENOTROPIN [Suspect]
     Active Substance: SOMATROPIN
     Dosage: 5 MG
  5. GENOTROPIN [Suspect]
     Active Substance: SOMATROPIN
     Dosage: UNK
  6. GENOTROPIN [Suspect]
     Active Substance: SOMATROPIN
     Dosage: 5 MG, UNK
     Dates: start: 2000

REACTIONS (2)
  - Drug ineffective [Unknown]
  - Expired product administered [Not Recovered/Not Resolved]
